FAERS Safety Report 9305918 (Version 2)
Quarter: 2013Q1

REPORT INFORMATION
  Report Type: Spontaneous
  Country: US (occurrence: None)
  Receive Date: 20130204
  Receipt Date: 20130227
  Transmission Date: 20140127
  Serious: Yes (Other)
  Sender: FDA-Public Use
  Company Number: US-1196215

PATIENT
  Age: 55 Year
  Sex: Female
  Weight: 97.52 kg

DRUGS (5)
  1. SYSTANE EYE DROPS [Suspect]
     Indication: DRY EYE
     Dosage: (AS NEEDED OPHTHALMIC)
     Route: 047
     Dates: start: 2012, end: 20120915
  2. NEXIUM [Concomitant]
  3. SYNTHROID [Concomitant]
  4. LOTREL [Concomitant]
  5. LEXAPRO [Concomitant]

REACTIONS (3)
  - Corneal abrasion [None]
  - Eye injury [None]
  - Product packaging issue [None]
